FAERS Safety Report 9112966 (Version 3)
Quarter: 2013Q2

REPORT INFORMATION
  Report Type: Report from Study
  Country: GB (occurrence: GB)
  Receive Date: 20130211
  Receipt Date: 20130524
  Transmission Date: 20140414
  Serious: Yes (Hospitalization, Disabling, Other)
  Sender: FDA-Public Use
  Company Number: GB-VERTEX PHARMACEUTICALS INC.-2013-001834

PATIENT
  Age: 37 Year
  Sex: Female

DRUGS (3)
  1. VX-950 (TELAPREVIR) [Suspect]
     Indication: HEPATITIS C
     Dosage: 1.5 MG, TID
     Route: 048
     Dates: start: 20121115, end: 20130214
  2. PEG INTERFERON [Concomitant]
     Indication: HEPATITIS C
     Dosage: DOSAGE FORM: UNSPECIFIED
     Route: 058
     Dates: start: 20121115, end: 20130312
  3. RIBAVIRIN [Concomitant]
     Indication: HEPATITIS C
     Dosage: DOSAGE FORM: TABLETS
     Route: 048
     Dates: start: 20121115, end: 20130312

REACTIONS (4)
  - Fat tissue increased [Recovered/Resolved]
  - Radiculopathy [Recovered/Resolved]
  - Epstein-Barr virus test positive [Recovered/Resolved]
  - Thyroid cyst [Unknown]
